FAERS Safety Report 4379256-X (Version None)
Quarter: 2004Q2

REPORT INFORMATION
  Report Type: 
  Country: None (occurrence: None)
  Receive Date: 20040610
  Receipt Date: 20040602
  Transmission Date: 20050107
  Serious: Yes (Death, Congenital Anomaly)
  Sender: FDA-Public Use
  Company Number: USA-04-0016-PRCH2

PATIENT
  Age: 14 Week

DRUGS (3)
  1. CRINONE [Suspect]
     Indication: INFERTILITY
     Dosage: ONE APPLICATOR DAILY
     Dates: start: 20031217, end: 20040101
  2. GONAL-F [Suspect]
     Indication: INFERTILITY
     Dates: start: 20031101, end: 20031201
  3. OVIDREL [Suspect]
     Indication: INFERTILITY
     Dates: start: 20031210, end: 20031217

REACTIONS (4)
  - DRUG EXPOSURE DURING PREGNANCY [None]
  - PLACENTAL DISORDER [None]
  - STILLBIRTH [None]
  - VENTRICULAR HYPOPLASIA [None]
